FAERS Safety Report 19360131 (Version 1)
Quarter: 2021Q2

REPORT INFORMATION
  Report Type: Report from Study
  Country: None (occurrence: US)
  Receive Date: 20210602
  Receipt Date: 20210602
  Transmission Date: 20210717
  Serious: No
  Sender: FDA-Public Use
  Company Number: US-MDD US OPERATIONS-MDD202007-001528

PATIENT
  Age: 82 Year
  Sex: Male
  Weight: 73.02 kg

DRUGS (5)
  1. SEROQUEL [Concomitant]
     Active Substance: QUETIAPINE FUMARATE
     Dosage: NOT PROVIDED
     Route: 048
  2. RYTARY [Concomitant]
     Active Substance: CARBIDOPA\LEVODOPA
     Dosage: NOT PROVIDED
     Route: 048
  3. APOKYN [Suspect]
     Active Substance: APOMORPHINE HYDROCHLORIDE
     Indication: PARKINSON^S DISEASE
     Route: 058
     Dates: start: 20200723
  4. NEUPRO PRO [Concomitant]
     Dosage: NOT PROVIDED
  5. XADAGO [Concomitant]
     Active Substance: SAFINAMIDE MESYLATE
     Dosage: NOT PROVIDED
     Route: 048

REACTIONS (3)
  - Head discomfort [Recovered/Resolved]
  - Tremor [Recovered/Resolved]
  - Flushing [Recovered/Resolved]

NARRATIVE: CASE EVENT DATE: 20200725
